FAERS Safety Report 6762892-0 (Version None)
Quarter: 2010Q2

REPORT INFORMATION
  Report Type: 
  Country: None (occurrence: None)
  Receive Date: 20100609
  Receipt Date: 20100531
  Transmission Date: 20101027
  Serious: Yes (Other)
  Sender: FDA-Public Use
  Company Number: US-PFIZER INC-2010068783

PATIENT

DRUGS (2)
  1. GEODON [Suspect]
     Dosage: 20 MG, 1X/DAY
  2. GEODON [Suspect]
     Dosage: 40 MG, 1X/DAY

REACTIONS (1)
  - MUSCLE SPASMS [None]
